FAERS Safety Report 6044441-8 (Version None)
Quarter: 2009Q1

REPORT INFORMATION
  Report Type: 
  Country: None (occurrence: None)
  Receive Date: 20090120
  Receipt Date: 20081019
  Transmission Date: 20090719
  Serious: Yes (Other)
  Sender: FDA-Public Use
  Company Number: JP-PFIZER INC-ENC200800188

PATIENT

DRUGS (5)
  1. ARGATROBAN [Suspect]
     Dosage: 3 TIMES WEEKLY
     Route: 042
     Dates: start: 20070101, end: 20071101
  2. FUROSEMIDE [Concomitant]
  3. ACETYLSALICYLIC ACID SRT [Concomitant]
  4. CANDESARTAN CILEXETIL [Concomitant]
  5. EPOETIN BETA [Suspect]
     Route: 042

REACTIONS (1)
  - HYPERCHOLESTEROLAEMIA [None]
